FAERS Safety Report 8679238 (Version 2)
Quarter: 2012Q4

REPORT INFORMATION
  Report Type: 
  Country: US (occurrence: US)
  Receive Date: 20120724
  Receipt Date: 20121026
  Transmission Date: 20130627
  Serious: Yes (Hospitalization, Other)
  Sender: FDA-Public Use
  Company Number: US-BAYER-2012-070898

PATIENT
  Age: 33 Year
  Sex: Female
  Weight: 77.3 kg

DRUGS (15)
  1. YASMIN [Suspect]
     Dosage: UNK
  2. IMITREX [Concomitant]
     Indication: MIGRAINE HEADACHE
     Dosage: UNK UNK, PRN
  3. TOPAMAX [Concomitant]
  4. ALBUTEROL [Concomitant]
     Dosage: 17 mg, PRN
     Route: 048
  5. LORTAB [Concomitant]
     Dosage: 7.5, PRN
     Route: 048
  6. SINGULAIR [Concomitant]
     Dosage: 10 mg, QD
     Route: 048
  7. ADVAIR [Concomitant]
     Dosage: UNK UNK, BID
  8. ATIVAN [Concomitant]
     Dosage: 0.5 mg, PRN
  9. SURFAK [Concomitant]
     Dosage: 240 mg, QD
  10. CLARITIN [Concomitant]
     Dosage: 10 mg, QD
  11. PREDNISONE [Concomitant]
     Dosage: 60 mg, PRN
  12. XOPENEX [Concomitant]
     Dosage: 1.25, PRN
  13. VERAPAMIL [Concomitant]
     Dosage: 120 mg, QD
  14. ASA [Concomitant]
     Dosage: 81 mg, QD
  15. AMOXICILLIN [Concomitant]

REACTIONS (2)
  - Pulmonary embolism [None]
  - Cholecystectomy [None]
